FAERS Safety Report 7734231-X (Version None)
Quarter: 2011Q3

REPORT INFORMATION
  Report Type: 
  Country: None (occurrence: None)
  Receive Date: 20110906
  Receipt Date: 20110906
  Transmission Date: 20111222
  Serious: Yes (Other)
  Sender: FDA-Public Use
  Company Number: None

PATIENT
  Weight: 39 kg

DRUGS (2)
  1. NIZATIDINE [Suspect]
     Indication: VOMITING
     Dosage: 150 MG BID ORAL
     Route: 048
  2. NIZATIDINE [Suspect]
     Indication: GASTROOESOPHAGEAL REFLUX DISEASE
     Dosage: 150 MG BID ORAL
     Route: 048

REACTIONS (4)
  - PRODUCT SUBSTITUTION ISSUE [None]
  - DIET REFUSAL [None]
  - DRUG EFFECT DECREASED [None]
  - VOMITING [None]
